FAERS Safety Report 17335171 (Version 2)
Quarter: 2020Q1

REPORT INFORMATION
  Report Type: Spontaneous
  Country: US (occurrence: US)
  Receive Date: 20200128
  Receipt Date: 20200302
  Transmission Date: 20200409
  Serious: Yes (Other)
  Sender: FDA-Public Use
  Company Number: US-ZO SKIN HEALTH-2020ZOS00003

PATIENT
  Age: 49 Year
  Sex: Female

DRUGS (3)
  1. REFISSA [Suspect]
     Active Substance: TRETINOIN
     Indication: PROPHYLAXIS
     Dosage: ^PINKY LENGTH^ TO FACE, 1X/DAY
     Route: 061
     Dates: start: 20191030, end: 2019
  2. REFISSA [Suspect]
     Active Substance: TRETINOIN
     Indication: DILATED PORES
  3. REFISSA [Suspect]
     Active Substance: TRETINOIN
     Indication: DRY SKIN

REACTIONS (2)
  - Hypersensitivity [Recovered/Resolved]
  - Swollen tongue [Recovered/Resolved]

NARRATIVE: CASE EVENT DATE: 20191030
